FAERS Safety Report 8464735-6 (Version None)
Quarter: 2012Q2

REPORT INFORMATION
  Report Type: 
  Country: None (occurrence: None)
  Receive Date: 20120626
  Receipt Date: 20120622
  Transmission Date: 20120825
  Serious: No
  Sender: FDA-Public Use
  Company Number: US-PFIZER INC-2012136560

PATIENT
  Sex: Male
  Weight: 113 kg

DRUGS (11)
  1. LYRICA [Suspect]
     Indication: PARAESTHESIA
  2. ALLOPURINOL [Concomitant]
     Indication: BLOOD URIC ACID ABNORMAL
  3. PERCOCET [Concomitant]
     Indication: PAIN
     Dosage: 5/325 MG, 3X/DAY
  4. LYRICA [Suspect]
     Indication: HYPOAESTHESIA
     Dosage: 75 MG, DAILY
     Dates: start: 20120605
  5. CYMBALTA [Concomitant]
     Indication: MYALGIA
     Dosage: 90 MG, DAILY
  6. LYRICA [Suspect]
     Indication: PAIN IN EXTREMITY
  7. ABILIFY [Concomitant]
     Indication: DEPRESSION
     Dosage: 15 MG, DAILY
  8. PREDNISONE [Suspect]
     Indication: MYALGIA
     Dosage: UNK
  9. ALLOPURINOL [Concomitant]
     Indication: GOUT
     Dosage: 300 MG, DAILY
  10. METHOTREXATE [Concomitant]
     Indication: MYALGIA
     Dosage: 12.5 MG, WEEKLY
  11. ARMODAFINIL [Concomitant]
     Indication: SOMNOLENCE
     Dosage: 250 MG, DAILY

REACTIONS (3)
  - SOMNOLENCE [None]
  - FATIGUE [None]
  - DIARRHOEA [None]
